FAERS Safety Report 6707478-9 (Version None)
Quarter: 2010Q2

REPORT INFORMATION
  Report Type: 
  Country: None (occurrence: None)
  Receive Date: 20100503
  Receipt Date: 20090727
  Transmission Date: 20101027
  Serious: No
  Sender: FDA-Public Use
  Company Number: US-ASTRAZENECA-2009UW14832

PATIENT
  Age: 50 Year
  Sex: Male
  Weight: 63.5 kg

DRUGS (4)
  1. NEXIUM [Suspect]
     Route: 048
  2. OXYCONTIN [Concomitant]
  3. METOPROLOL TARTRATE [Concomitant]
  4. AMITRIPTYLINE [Concomitant]

REACTIONS (2)
  - EATING DISORDER [None]
  - HAEMATEMESIS [None]
